FAERS Safety Report 5893645-3 (Version None)
Quarter: 2008Q3

REPORT INFORMATION
  Report Type: 
  Country: None (occurrence: None)
  Receive Date: 20080923
  Receipt Date: 20071030
  Transmission Date: 20090109
  Serious: No
  Sender: FDA-Public Use
  Company Number: US-ASTRAZENECA-2007UW22821

PATIENT
  Age: 51 Year
  Sex: Female
  Weight: 94.3 kg

DRUGS (1)
  1. SEROQUEL [Suspect]
     Indication: BIPOLAR DISORDER
     Route: 048
     Dates: start: 20070601, end: 20070701

REACTIONS (4)
  - ENURESIS [None]
  - INCONTINENCE [None]
  - MUSCLE SPASMS [None]
  - SOMNOLENCE [None]
